FAERS Safety Report 12047079 (Version 1)
Quarter: 2016Q1

REPORT INFORMATION
  Report Type: Spontaneous
  Country: DK (occurrence: DK)
  Receive Date: 20160209
  Receipt Date: 20160209
  Transmission Date: 20160526
  Serious: Yes (Other)
  Sender: FDA-Public Use
  Company Number: DK-ACCORD-037538

PATIENT
  Age: 56 Year
  Sex: Female

DRUGS (1)
  1. QUETIAPINE [Suspect]
     Active Substance: QUETIAPINE
     Indication: SLEEP DISORDER
     Dosage: STRENGTH: 25 MG?STARTED AT 25 MG ONCE A DAY IN AUTUMN OF 2013.?ON AN UNKNOWN DATE DOSE DOWN TO 5 M
     Route: 048
     Dates: start: 2013

REACTIONS (6)
  - Food interaction [Unknown]
  - Tinnitus [Not Recovered/Not Resolved]
  - Malaise [Unknown]
  - Off label use [Unknown]
  - Dizziness [Unknown]
  - Vomiting [Unknown]

NARRATIVE: CASE EVENT DATE: 2015
